FAERS Safety Report 17457227 (Version 1)
Quarter: 2020Q1

REPORT INFORMATION
  Report Type: Report from Study
  Country: None (occurrence: NL)
  Receive Date: 20200225
  Receipt Date: 20200225
  Transmission Date: 20200409
  Serious: Yes (Death)
  Sender: FDA-Public Use
  Company Number: NL-ABBVIE-20K-114-3288620-00

PATIENT
  Age: 79 Year
  Sex: Female

DRUGS (1)
  1. DUODOPA [Suspect]
     Active Substance: CARBIDOPA\LEVODOPA
     Indication: PARKINSON^S DISEASE
     Route: 050
     Dates: start: 20200210, end: 202002

REACTIONS (2)
  - Cardiac arrest [Fatal]
  - Aspiration [Fatal]

NARRATIVE: CASE EVENT DATE: 202002
